FAERS Safety Report 8613869-1 (Version None)
Quarter: 2012Q3

REPORT INFORMATION
  Report Type: 
  Country: None (occurrence: None)
  Receive Date: 20120823
  Receipt Date: 20120726
  Transmission Date: 20120928
  Serious: No
  Sender: FDA-Public Use
  Company Number: US-009507513-1207USA012468

PATIENT

DRUGS (1)
  1. NASONEX [Suspect]
     Indication: SINUS CONGESTION
     Dosage: 50 MICROGRAM, UNK
     Route: 045
     Dates: start: 20120714, end: 20120701

REACTIONS (4)
  - SKIN IRRITATION [None]
  - PAIN [None]
  - SKIN WRINKLING [None]
  - RASH [None]
